FAERS Safety Report 20850778 (Version 1)
Quarter: 2022Q2

REPORT INFORMATION
  Report Type: Spontaneous
  Country: JP (occurrence: JP)
  Receive Date: 20220519
  Receipt Date: 20220519
  Transmission Date: 20220721
  Serious: Yes (Death, Other)
  Sender: FDA-Public Use
  Company Number: JP-PFIZER INC-202200721672

PATIENT
  Age: 87 Year
  Sex: Female

DRUGS (2)
  1. MINOCYCLINE [Suspect]
     Active Substance: MINOCYCLINE HYDROCHLORIDE
     Dosage: UNK
  2. LEVOFLOXACIN [Suspect]
     Active Substance: LEVOFLOXACIN
     Dosage: UNK

REACTIONS (5)
  - Death [Fatal]
  - Altered state of consciousness [Unknown]
  - Disseminated intravascular coagulation [Unknown]
  - Blood pressure inadequately controlled [Unknown]
  - Hypoglycaemia [Unknown]
